FAERS Safety Report 8327417-7 (Version None)
Quarter: 2012Q2

REPORT INFORMATION
  Report Type: 
  Country: None (occurrence: None)
  Receive Date: 20120502
  Receipt Date: 20120426
  Transmission Date: 20120825
  Serious: Yes (Hospitalization, Other)
  Sender: FDA-Public Use
  Company Number: US-ELI_LILLY_AND_COMPANY-US201204009867

PATIENT
  Sex: Male

DRUGS (4)
  1. HUMALOG [Suspect]
     Dosage: SLIDING SCALE
  2. HUMALOG [Suspect]
     Indication: DIABETES MELLITUS
     Dosage: SLIDING SCALE
  3. HUMALOG [Suspect]
     Dosage: SLIDING SCALE
  4. HUMALOG [Suspect]
     Dosage: SLIDING SCALE

REACTIONS (6)
  - RENAL FAILURE [None]
  - BLOOD GLUCOSE INCREASED [None]
  - ATRIAL FIBRILLATION [None]
  - HOSPITALISATION [None]
  - EXPIRED DRUG ADMINISTERED [None]
  - GOUT [None]
